FAERS Safety Report 17966741 (Version 1)
Quarter: 2020Q3

REPORT INFORMATION
  Report Type: Spontaneous
  Country: CA (occurrence: CA)
  Receive Date: 20200701
  Receipt Date: 20200701
  Transmission Date: 20201103
  Serious: Yes (Other)
  Sender: FDA-Public Use
  Company Number: CA-MACLEODS PHARMACEUTICALS US LTD-MAC2020026957

PATIENT

DRUGS (6)
  1. LOXAPINE. [Concomitant]
     Active Substance: LOXAPINE
     Indication: AGITATION
     Dosage: UNK UNK, PRN, 25?50 MG EVERY 6 HR
     Route: 065
  2. LORAZEPAM. [Concomitant]
     Active Substance: LORAZEPAM
     Indication: AGITATION
     Dosage: UNK UNK, PRN, 1?2 MG EVERY 4 H
     Route: 065
  3. LOXAPINE. [Concomitant]
     Active Substance: LOXAPINE
     Dosage: UNK, 2 INJECTIONS
     Route: 030
  4. ARIPIPRAZOLE. [Suspect]
     Active Substance: ARIPIPRAZOLE
     Indication: DELUSION
     Dosage: 5 MILLIGRAM, QD
     Route: 065
  5. QUETIAPINE. [Suspect]
     Active Substance: QUETIAPINE
     Indication: AGITATION
     Dosage: UNK UNK, PRN, 100?300 MG/D
     Route: 065
  6. ARIPIPRAZOLE. [Suspect]
     Active Substance: ARIPIPRAZOLE
     Indication: HALLUCINATION, AUDITORY
     Dosage: 15 MILLIGRAM, QD
     Route: 065

REACTIONS (3)
  - Drug ineffective [Unknown]
  - Akathisia [Recovering/Resolving]
  - Dystonia [Recovered/Resolved]
